FAERS Safety Report 16330053 (Version 5)
Quarter: 2019Q3

REPORT INFORMATION
  Report Type: Spontaneous
  Country: CA (occurrence: CA)
  Receive Date: 20190520
  Receipt Date: 20190901
  Transmission Date: 20191004
  Serious: Yes (Other)
  Sender: FDA-Public Use
  Company Number: CA-CELLTRION INC.-2018CA024429

PATIENT

DRUGS (31)
  1. INFLECTRA [Suspect]
     Active Substance: INFLIXIMAB-DYYB
     Indication: CROHN^S DISEASE
     Dosage: 600 MG AT 2, 6 WEEKS, THEN EVERY 8 WEEKS
     Route: 042
     Dates: start: 20181126
  2. INFLECTRA [Suspect]
     Active Substance: INFLIXIMAB-DYYB
     Dosage: 600 MG AT 2, 6 WEEKS, THEN EVERY 8 WEEKS
     Route: 042
     Dates: start: 20181214
  3. INFLECTRA [Suspect]
     Active Substance: INFLIXIMAB-DYYB
     Dosage: 600 MG EVERY 4 WEEKS
     Route: 042
     Dates: start: 20190502
  4. INFLECTRA [Suspect]
     Active Substance: INFLIXIMAB-DYYB
     Dosage: 1200 MG ONE TIME DOSE
     Route: 042
  5. INFLECTRA [Suspect]
     Active Substance: INFLIXIMAB-DYYB
     Dosage: 600 MG, EVERY 4 WEEKS
     Route: 042
  6. INFLECTRA [Suspect]
     Active Substance: INFLIXIMAB-DYYB
     Dosage: 600 MG AT 2, 6 WEEKS, THEN EVERY 8 WEEKS
     Route: 042
  7. INFLECTRA [Suspect]
     Active Substance: INFLIXIMAB-DYYB
     Dosage: 600 MG EVERY 4 WEEKS
     Route: 042
  8. INFLECTRA [Suspect]
     Active Substance: INFLIXIMAB-DYYB
     Dosage: 600 MG EVERY 4 WEEKS
     Route: 042
     Dates: start: 20190529
  9. METHOTREXATE. [Concomitant]
     Active Substance: METHOTREXATE
     Indication: SARCOIDOSIS
     Dosage: 12.5 MG, WEEKLY
     Route: 065
  10. PREDNISONE. [Concomitant]
     Active Substance: PREDNISONE
     Dosage: 40 MG, UNK
     Route: 065
  11. IMURAN [Concomitant]
     Active Substance: AZATHIOPRINE
     Indication: SARCOIDOSIS
     Dosage: UNK
     Route: 065
     Dates: start: 201709
  12. PREDNISONE. [Concomitant]
     Active Substance: PREDNISONE
     Dosage: 40 MG, UNK
     Route: 065
     Dates: start: 2019
  13. FOLIC ACID. [Concomitant]
     Active Substance: FOLIC ACID
     Dosage: UNK
  14. INFLECTRA [Suspect]
     Active Substance: INFLIXIMAB-DYYB
     Dosage: 600 MG AT 2, 6 WEEKS, THEN EVERY 8 WEEKS
     Route: 042
  15. INFLECTRA [Suspect]
     Active Substance: INFLIXIMAB-DYYB
     Dosage: 600 MG EVERY 4 WEEKS
     Route: 042
  16. INFLECTRA [Suspect]
     Active Substance: INFLIXIMAB-DYYB
     Dosage: 600 MG EVERY 4 WEEKS
     Route: 042
     Dates: start: 20190403
  17. INFLECTRA [Suspect]
     Active Substance: INFLIXIMAB-DYYB
     Dosage: 1200 MG ONE TIME DOSE
     Route: 042
     Dates: start: 20190627
  18. METHOTREXATE. [Concomitant]
     Active Substance: METHOTREXATE
     Dosage: 20 MG, UNK
     Route: 065
     Dates: start: 201606, end: 201709
  19. METHOTREXATE. [Concomitant]
     Active Substance: METHOTREXATE
     Dosage: 12.5 MG, WEEKLY
     Route: 065
  20. PREDNISONE. [Concomitant]
     Active Substance: PREDNISONE
     Dosage: UNK
     Dates: start: 2016, end: 2017
  21. INFLECTRA [Suspect]
     Active Substance: INFLIXIMAB-DYYB
     Dosage: 600 MG EVERY 4 WEEKS
     Route: 042
     Dates: start: 20190307
  22. INFLECTRA [Suspect]
     Active Substance: INFLIXIMAB-DYYB
     Dosage: 600 MG EVERY 4 WEEKS
     Route: 042
     Dates: start: 20190529
  23. INFLECTRA [Suspect]
     Active Substance: INFLIXIMAB-DYYB
     Dosage: 1200 MG ONE TIME DOSE
     Route: 042
     Dates: end: 20190627
  24. METHOTREXATE. [Concomitant]
     Active Substance: METHOTREXATE
     Dosage: 20 MG, UNK
     Route: 065
     Dates: start: 2018
  25. PREDNISONE. [Concomitant]
     Active Substance: PREDNISONE
     Indication: SARCOIDOSIS
     Dosage: 35 MG, TAPERING
     Route: 048
  26. INFLECTRA [Suspect]
     Active Substance: INFLIXIMAB-DYYB
     Dosage: 600 MG AT 2, 6 WEEKS, THEN EVERY 8 WEEKS
     Route: 042
     Dates: start: 20190110
  27. INFLECTRA [Suspect]
     Active Substance: INFLIXIMAB-DYYB
     Dosage: 600 MG EVERY 4 WEEKS
     Route: 042
  28. INFLECTRA [Suspect]
     Active Substance: INFLIXIMAB-DYYB
     Dosage: 600 MG, EVERY 4 WEEKS
     Dates: start: 20190724
  29. INFLECTRA [Suspect]
     Active Substance: INFLIXIMAB-DYYB
     Dosage: 600 MG, EVERY 4 WEEKS
     Route: 042
     Dates: start: 20190820
  30. INFLECTRA [Suspect]
     Active Substance: INFLIXIMAB-DYYB
     Dosage: 600 MG EVERY 4 WEEKS
     Route: 042
     Dates: start: 20190206
  31. INFLECTRA [Suspect]
     Active Substance: INFLIXIMAB-DYYB
     Dosage: 600 MG EVERY 4 WEEKS
     Route: 042
     Dates: start: 20190502

REACTIONS (13)
  - Abdominal pain [Not Recovered/Not Resolved]
  - Therapeutic product effect incomplete [Unknown]
  - Intentional product use issue [Unknown]
  - Blood pressure fluctuation [Unknown]
  - Drug level decreased [Unknown]
  - Condition aggravated [Unknown]
  - Inappropriate schedule of product administration [Unknown]
  - Faecal calprotectin increased [Unknown]
  - Arthralgia [Recovered/Resolved]
  - Abnormal behaviour [Unknown]
  - Fatigue [Not Recovered/Not Resolved]
  - Feeling abnormal [Unknown]
  - Off label use [Unknown]

NARRATIVE: CASE EVENT DATE: 20181126
